FAERS Safety Report 13392861 (Version 13)
Quarter: 2018Q2

REPORT INFORMATION
  Report Type: Report from Study
  Country: JP (occurrence: JP)
  Receive Date: 20170331
  Receipt Date: 20180619
  Transmission Date: 20180711
  Serious: Yes (Hospitalization, Other)
  Sender: FDA-Public Use
  Company Number: JP-AMGEN-JPNCT2017050149

PATIENT
  Age: 70 Year
  Sex: Male
  Weight: 63.9 kg

DRUGS (38)
  1. PANITUMUMAB [Suspect]
     Active Substance: PANITUMUMAB
     Dosage: 220 MG, Q2WK
     Route: 041
     Dates: start: 20170414, end: 20170414
  2. FLUOROURACIL. [Suspect]
     Active Substance: FLUOROURACIL
     Dosage: 2800 MG, Q2WEEKS
     Route: 041
     Dates: start: 20170317, end: 20170609
  3. VONOPRAZAN FUMARATE [Concomitant]
     Active Substance: VONOPRAZAN FUMURATE
     Dosage: 1 DF, QD
     Route: 048
     Dates: end: 20170709
  4. MINOCYCLINE HYDROCHLORIDE. [Concomitant]
     Active Substance: MINOCYCLINE HYDROCHLORIDE
     Indication: PROPHYLAXIS
     Dosage: 2 DF, BID
     Route: 048
     Dates: start: 20170210, end: 20170304
  5. FLUOROURACIL. [Suspect]
     Active Substance: FLUOROURACIL
     Dosage: 4350 MG, Q2WEEKS
     Route: 041
     Dates: start: 20170210, end: 20170210
  6. BISOPROLOL FUMARATE. [Concomitant]
     Active Substance: BISOPROLOL FUMARATE
     Dosage: 5 MG, QD
     Route: 048
     Dates: start: 20170311, end: 20170709
  7. BIO-THREE [Concomitant]
     Active Substance: HERBALS
     Indication: ILEOSTOMY
     Dosage: 2 DF, TID
     Route: 048
     Dates: start: 20170107
  8. BERBERINE HYDROCHLORIDE W/GERANIUM THUNBERGII [Concomitant]
     Indication: ILEOSTOMY
     Dosage: 2 DF, TID
     Route: 048
     Dates: start: 20170127
  9. BACILLUS MESENTERICUS W/CLOSTRIDIUM/07959301/ [Concomitant]
     Indication: ILEOSTOMY
     Dosage: 2 DF, TID
     Route: 048
     Dates: start: 20170107
  10. OXALIPLATIN. [Suspect]
     Active Substance: OXALIPLATIN
     Dosage: 87 MG, Q2WEEKS
     Route: 041
     Dates: start: 20170317, end: 20170609
  11. FLUOROURACIL. [Suspect]
     Active Substance: FLUOROURACIL
     Dosage: 360 MG, Q2WK
     Route: 040
     Dates: start: 20170224, end: 20170224
  12. FLUOROURACIL. [Suspect]
     Active Substance: FLUOROURACIL
     Dosage: 3640 MG, Q2WEEKS
     Route: 041
     Dates: start: 20170224, end: 20170224
  13. VONOPRAZAN FUMARATE [Concomitant]
     Active Substance: VONOPRAZAN FUMURATE
     Dosage: 10 MG, BID
     Route: 048
     Dates: start: 20170714
  14. INSULIN GLARGINE [Concomitant]
     Active Substance: INSULIN GLARGINE
     Indication: DIABETES MELLITUS
     Dosage: 4 IU, QD
     Route: 058
     Dates: start: 20170227, end: 20170304
  15. INSULIN GLARGINE [Concomitant]
     Active Substance: INSULIN GLARGINE
     Dosage: 2 IU, QD
     Route: 058
     Dates: end: 20170709
  16. BISOPROLOL FUMARATE. [Concomitant]
     Active Substance: BISOPROLOL FUMARATE
     Indication: HYPERTENSION
     Dosage: 1 DF, QD
     Route: 048
     Dates: start: 20170107, end: 20170304
  17. INSULIN ASPART [Concomitant]
     Active Substance: INSULIN ASPART
     Indication: DIABETES MELLITUS
     Dosage: 4 IU, TID
     Route: 058
     Dates: start: 20170128, end: 20170304
  18. BIO-THREE [Concomitant]
     Active Substance: HERBALS
     Dosage: 2 DF, TID
     Route: 048
     Dates: start: 20170310, end: 20170709
  19. PANITUMUMAB [Suspect]
     Active Substance: PANITUMUMAB
     Indication: RECTOSIGMOID CANCER
     Dosage: 440 MG, Q2WK
     Route: 041
     Dates: start: 20170210, end: 20170224
  20. PANITUMUMAB [Suspect]
     Active Substance: PANITUMUMAB
     Dosage: 320 MG, Q2WK
     Route: 041
     Dates: start: 20170317, end: 20170317
  21. INSULIN ASPART [Concomitant]
     Active Substance: INSULIN ASPART
     Dosage: 4 IU, BID
     Route: 058
     Dates: end: 20170709
  22. EDOXABAN TOSILATE [Concomitant]
     Active Substance: EDOXABAN TOSYLATE
     Indication: DEEP VEIN THROMBOSIS
     Dosage: 30 MG, QD
     Route: 048
     Dates: start: 20170311, end: 20170709
  23. AMLODIPINE BESILATE [Concomitant]
     Active Substance: AMLODIPINE BESYLATE
     Indication: HYPERTENSION
     Dosage: 1 DF, QD
     Route: 048
     Dates: start: 20170107, end: 20170304
  24. IRBESARTAN. [Concomitant]
     Active Substance: IRBESARTAN
     Indication: HYPERTENSION
     Dosage: 1 DF, QD
     Route: 048
     Dates: start: 20170107, end: 20170304
  25. FUROSEMIDE. [Concomitant]
     Active Substance: FUROSEMIDE
     Indication: OEDEMA
     Dosage: 10 MG, QD
     Route: 048
     Dates: start: 20170526, end: 20170709
  26. BACILLUS MESENTERICUS W/CLOSTRIDIUM/07959301/ [Concomitant]
     Dosage: 2 DF, TID
     Route: 048
     Dates: start: 20170310, end: 20170709
  27. FLUOROURACIL. [Suspect]
     Active Substance: FLUOROURACIL
     Indication: RECTOSIGMOID CANCER
     Dosage: 700 MG, Q2WEEKS
     Route: 040
     Dates: start: 20170210, end: 20170210
  28. BERBERINE HYDROCHLORIDE W/GERANIUM THUNBERGII [Concomitant]
     Dosage: 2 DF, TID
     Route: 048
     Dates: start: 20170310, end: 20170709
  29. PANITUMUMAB [Suspect]
     Active Substance: PANITUMUMAB
     Dosage: 220 MG, Q2WK
     Route: 041
     Dates: start: 20170526, end: 20170526
  30. OXALIPLATIN. [Suspect]
     Active Substance: OXALIPLATIN
     Indication: RECTOSIGMOID CANCER
     Dosage: 150 MG, Q2WEEKS
     Route: 041
     Dates: start: 20170210, end: 20170210
  31. PAPAVER SOMNIFERUM TINCTURE [Concomitant]
     Dosage: 1 G, TID
     Route: 048
     Dates: start: 20170310, end: 20170709
  32. OXALIPLATIN. [Suspect]
     Active Substance: OXALIPLATIN
     Dosage: 118 MG, Q2WEEKS
     Route: 041
     Dates: start: 20170224, end: 20170224
  33. VONOPRAZAN FUMARATE [Concomitant]
     Active Substance: VONOPRAZAN FUMURATE
     Indication: PROPHYLAXIS
     Dosage: 2 DF, QD
     Route: 048
     Dates: start: 20170210, end: 20170304
  34. VONOPRAZAN FUMARATE [Concomitant]
     Active Substance: VONOPRAZAN FUMURATE
     Dosage: 20 MG, UNK
     Route: 048
     Dates: start: 20170311
  35. CALCIUM LEVOFOLINATE [Concomitant]
     Active Substance: LEVOLEUCOVORIN CALCIUM
     Indication: RECTOSIGMOID CANCER
     Dosage: 350 MG, Q2WEEKS
     Route: 041
     Dates: start: 20170210, end: 20170609
  36. EDOXABAN TOSILATE [Concomitant]
     Active Substance: EDOXABAN TOSYLATE
     Indication: THROMBOSIS IN DEVICE
     Dosage: 30 MG, QD
     Route: 048
     Dates: start: 20170201
  37. PAPAVER SOMNIFERUM TINCTURE [Concomitant]
     Indication: ILEOSTOMY
     Dosage: 1 G, TID
     Route: 048
     Dates: start: 20170201
  38. URSODEOXYCHOLIC ACID [Concomitant]
     Active Substance: URSODIOL
     Indication: HEPATIC FUNCTION ABNORMAL
     Dosage: 100 MG, TID
     Route: 048
     Dates: start: 20170623, end: 20170709

REACTIONS (20)
  - Paronychia [Recovered/Resolved]
  - Hypokalaemia [Recovered/Resolved]
  - Gastrointestinal haemorrhage [Recovered/Resolved]
  - Renal impairment [Recovered/Resolved]
  - Malaise [Recovered/Resolved]
  - Acute kidney injury [Recovered/Resolved]
  - Diarrhoea [Recovered/Resolved]
  - Alanine aminotransferase increased [Recovered/Resolved]
  - Hyperkalaemia [Recovered/Resolved]
  - Spinal compression fracture [Recovering/Resolving]
  - Aspartate aminotransferase increased [Recovered/Resolved]
  - Platelet count decreased [Recovered/Resolved]
  - Aspartate aminotransferase increased [Recovered/Resolved]
  - Dry skin [Recovered/Resolved]
  - Hypomagnesaemia [Recovered/Resolved]
  - Anaemia [Not Recovered/Not Resolved]
  - Decreased appetite [Recovered/Resolved]
  - Dermatitis acneiform [Recovered/Resolved]
  - Hyponatraemia [Recovered/Resolved]
  - Alanine aminotransferase increased [Recovered/Resolved]

NARRATIVE: CASE EVENT DATE: 20170305
